FAERS Safety Report 6264043-8 (Version None)
Quarter: 2009Q4

REPORT INFORMATION
  Report Type: 
  Country: None (occurrence: None)
  Receive Date: 20090706
  Receipt Date: 20080607
  Transmission Date: 20100525
  Serious: Yes (Hospitalization)
  Sender: FDA-Public Use
  Company Number: 569055

PATIENT
  Age: 60 Year
  Sex: Female
  Weight: 57.6 kg

DRUGS (5)
  1. CELLCEPT [Suspect]
     Indication: RHEUMATOID ARTHRITIS
     Dosage: 1500 MG  2 PER DAY  ORAL
     Route: 048
     Dates: start: 19980101, end: 20080201
  2. ATENOLOL [Concomitant]
  3. PREDNISONE TAB [Concomitant]
  4. PLAQUENIL (HYDROYCHLOROQUINE SULFATE) [Concomitant]
  5. PRILOSEC [Concomitant]

REACTIONS (4)
  - FEELING ABNORMAL [None]
  - PAIN [None]
  - RASH MACULAR [None]
  - RESPIRATORY TRACT CONGESTION [None]
